FAERS Safety Report 25854317 (Version 1)
Quarter: 2025Q3

REPORT INFORMATION
  Report Type: Report from Study
  Country: CA (occurrence: CA)
  Receive Date: 20250927
  Receipt Date: 20250927
  Transmission Date: 20251021
  Serious: Yes (Hospitalization)
  Sender: ABBVIE
  Company Number: CA-ABBVIE-6475749

PATIENT
  Age: 27 Year
  Sex: Female

DRUGS (1)
  1. SKYRIZI [Suspect]
     Active Substance: RISANKIZUMAB-RZAA
     Indication: Crohn^s disease
     Route: 058

REACTIONS (3)
  - Panic reaction [Recovered/Resolved]
  - Dizziness [Not Recovered/Not Resolved]
  - Panic reaction [Recovered/Resolved]

NARRATIVE: CASE EVENT DATE: 20250301
